FAERS Safety Report 9208899 (Version 2)
Quarter: 2014Q1

REPORT INFORMATION
  Report Type: Report from Study
  Country: CA (occurrence: CA)
  Receive Date: 20130404
  Receipt Date: 20140122
  Transmission Date: 20141002
  Serious: Yes (Other)
  Sender: FDA-Public Use
  Company Number: CA-JNJFOC-20130317623

PATIENT
  Age: 47 Year
  Sex: Female
  Weight: 80 kg

DRUGS (12)
  1. REMICADE [Suspect]
     Indication: CROHN^S DISEASE
     Route: 042
     Dates: start: 20130716, end: 20140106
  2. REMICADE [Suspect]
     Indication: CROHN^S DISEASE
     Route: 042
     Dates: start: 200811
  3. NEXIUM [Concomitant]
     Route: 065
  4. LIPITOR [Concomitant]
     Route: 065
  5. DICETEL [Concomitant]
     Route: 065
  6. TYLENOL ARTHRITE [Concomitant]
     Route: 065
  7. VITAMIN D W/ CALCIUM [Concomitant]
     Route: 065
  8. ARAVA [Concomitant]
     Route: 065
  9. AVALIDE [Concomitant]
     Route: 065
  10. VOLTAREN [Concomitant]
     Route: 065
  11. SYNTHROID [Concomitant]
     Route: 065
  12. APO-METOCLOPRAMIDE [Concomitant]
     Route: 065

REACTIONS (2)
  - Ankle fracture [Unknown]
  - Osteomyelitis [Unknown]
